FAERS Safety Report 18638876 (Version 1)
Quarter: 2020Q4

REPORT INFORMATION
  Report Type: Other
  Country: US (occurrence: US)
  Receive Date: 20201218
  Receipt Date: 20201218
  Transmission Date: 20210114
  Serious: No
  Sender: FDA-Public Use
  Company Number: US-ROCHE-2593630

PATIENT
  Age: 54 Year
  Sex: Male

DRUGS (3)
  1. OBINUTUZUMAB. [Suspect]
     Active Substance: OBINUTUZUMAB
     Dosage: ON DAY 2
     Route: 042
  2. OBINUTUZUMAB. [Suspect]
     Active Substance: OBINUTUZUMAB
     Indication: GLOMERULONEPHRITIS MEMBRANOUS
     Dosage: ON DAY 1
     Route: 042
  3. OBINUTUZUMAB. [Suspect]
     Active Substance: OBINUTUZUMAB
     Dosage: ON DAY 15
     Route: 042

REACTIONS (1)
  - Herpes zoster [Unknown]
